FAERS Safety Report 9411513 (Version 1)
Quarter: 2013Q3

REPORT INFORMATION
  Report Type: Spontaneous
  Country: US (occurrence: None)
  Receive Date: 20130718
  Receipt Date: 20130718
  Transmission Date: 20140515
  Serious: No
  Sender: FDA-Public Use
  Company Number: None

PATIENT
  Age: 62 Year
  Sex: Female
  Weight: 47.63 kg

DRUGS (1)
  1. SYNTHROID [Suspect]
     Dosage: 1 PILL
     Dates: start: 20130617

REACTIONS (13)
  - Hyperhidrosis [None]
  - Agitation [None]
  - Gastrointestinal disorder [None]
  - Headache [None]
  - Nausea [None]
  - Abdominal pain upper [None]
  - Dyspnoea [None]
  - Diarrhoea [None]
  - Sleep disorder [None]
  - Fatigue [None]
  - Dysphonia [None]
  - Anger [None]
  - Vomiting [None]
